FAERS Safety Report 21936418 (Version 1)
Quarter: 2023Q1

REPORT INFORMATION
  Report Type: Report from Study
  Country: US (occurrence: US)
  Receive Date: 20230201
  Receipt Date: 20230201
  Transmission Date: 20230418
  Serious: No
  Sender: FDA-Public Use
  Company Number: US-INCYTE CORPORATION-2020IN008118

PATIENT

DRUGS (1)
  1. PEMIGATINIB [Suspect]
     Active Substance: PEMIGATINIB
     Indication: Cholangiocarcinoma
     Dosage: 13.5 MILLIGRAM, 14 DAYS (2 WEEKS) FOLLOWED BY 7 DAYS (1 WEEK) OFF
     Route: 065
     Dates: start: 20200731

REACTIONS (3)
  - Hypervigilance [Unknown]
  - Inappropriate schedule of product administration [Unknown]
  - Fatigue [Unknown]
